FAERS Safety Report 4373978-2 (Version None)
Quarter: 2004Q2

REPORT INFORMATION
  Report Type: 
  Country: None (occurrence: None)
  Receive Date: 20040604
  Receipt Date: 20040527
  Transmission Date: 20050107
  Serious: Yes (Other)
  Sender: FDA-Public Use
  Company Number: HQWYE136828MAY04

PATIENT
  Age: 54 Year
  Sex: Female

DRUGS (2)
  1. EFFEXOR XR [Suspect]
     Indication: DEPRESSION
     Dosage: SEE IMAGE
     Route: 048
     Dates: start: 20031201, end: 20040301
  2. EFFEXOR XR [Suspect]
     Indication: DEPRESSION
     Dosage: SEE IMAGE
     Route: 048
     Dates: start: 20040301, end: 20040501

REACTIONS (6)
  - BLOOD DISORDER [None]
  - COLD SWEAT [None]
  - HOT FLUSH [None]
  - LUPUS-LIKE SYNDROME [None]
  - NAUSEA [None]
  - VOMITING [None]
